FAERS Safety Report 17744400 (Version 1)
Quarter: 2020Q2

REPORT INFORMATION
  Report Type: Spontaneous
  Country: IT (occurrence: IT)
  Receive Date: 20200504
  Receipt Date: 20200504
  Transmission Date: 20200714
  Serious: Yes (Hospitalization)
  Sender: FDA-Public Use
  Company Number: NVSC2020IT119525

PATIENT
  Age: 77 Year
  Sex: Male

DRUGS (1)
  1. HYDROCHLOROTHIAZIDE. [Suspect]
     Active Substance: HYDROCHLOROTHIAZIDE
     Indication: HYPERTENSION
     Dosage: 12.5 MG, QD
     Route: 048
     Dates: start: 20190101, end: 20190801

REACTIONS (4)
  - Dehydration [Recovering/Resolving]
  - Hyponatraemia [Recovering/Resolving]
  - Nausea [Recovering/Resolving]
  - Epigastric discomfort [Recovering/Resolving]

NARRATIVE: CASE EVENT DATE: 20190801
